FAERS Safety Report 22909897 (Version 2)
Quarter: 2023Q4

REPORT INFORMATION
  Report Type: Report from Study
  Country: US (occurrence: US)
  Receive Date: 20230906
  Receipt Date: 20231024
  Transmission Date: 20240110
  Serious: Yes (Other)
  Sender: FDA-Public Use
  Company Number: US-ABBVIE-5394655

PATIENT
  Sex: Female
  Weight: 93 kg

DRUGS (1)
  1. BOTOX [Suspect]
     Active Substance: ONABOTULINUMTOXINA
     Indication: Migraine
     Dosage: TIME INTERVAL: AS NECESSARY
     Route: 065

REACTIONS (9)
  - Disability [Unknown]
  - Clavicle fracture [Unknown]
  - Headache [Unknown]
  - Blepharospasm [Unknown]
  - Brain neoplasm [Unknown]
  - Muscle twitching [Unknown]
  - Migraine [Unknown]
  - Brain operation [Unknown]
  - Hysterectomy [Unknown]

NARRATIVE: CASE EVENT DATE: 20030101
